FAERS Safety Report 21785412 (Version 2)
Quarter: 2023Q1

REPORT INFORMATION
  Report Type: Spontaneous
  Country: DE (occurrence: DE)
  Receive Date: 20221227
  Receipt Date: 20230211
  Transmission Date: 20230418
  Serious: Yes (Other)
  Sender: FDA-Public Use
  Company Number: DE-ROCHE-3243010

PATIENT
  Sex: Male

DRUGS (19)
  1. BENDAMUSTINE HYDROCHLORIDE [Suspect]
     Active Substance: BENDAMUSTINE HYDROCHLORIDE
     Indication: Diffuse large B-cell lymphoma
     Dosage: (POLA-BR)
     Route: 042
     Dates: start: 20220501, end: 20220531
  2. DEXAMETHASONE [Suspect]
     Active Substance: DEXAMETHASONE
     Indication: Diffuse large B-cell lymphoma
     Dosage: (RITUXIMAB, LENALIDOMIDE, DEXAMETHASONE)
     Route: 065
     Dates: start: 20220701, end: 20220710
  3. LENALIDOMIDE [Suspect]
     Active Substance: LENALIDOMIDE
     Indication: Diffuse large B-cell lymphoma
     Dosage: (RITUXIMAB, LENALIDOMIDE, DEXAMETHASONE)
     Route: 065
     Dates: start: 20220701, end: 20220710
  4. LENALIDOMIDE [Suspect]
     Active Substance: LENALIDOMIDE
     Dosage: UNK UNK, UNKNOWN FREQ. (TAFASITAMAB, LENALIDOMIDE)
     Route: 065
     Dates: start: 20220830, end: 20220930
  5. GEMCITABINE [Suspect]
     Active Substance: GEMCITABINE
     Indication: Diffuse large B-cell lymphoma
     Dosage: (R-GEMOX) GEMOX
     Route: 065
     Dates: start: 20220201, end: 20220301
  6. OXALIPLATIN [Suspect]
     Active Substance: OXALIPLATIN
     Indication: Diffuse large B-cell lymphoma
     Dosage: (R-GEMOX) GEMOX
     Route: 065
     Dates: start: 20220201, end: 20220301
  7. DOXORUBICIN HYDROCHLORIDE [Suspect]
     Active Substance: DOXORUBICIN HYDROCHLORIDE
     Indication: Diffuse large B-cell lymphoma
     Dosage: (R-CHOP) CHOP
     Route: 065
     Dates: start: 20210901, end: 20220101
  8. PREDNISONE [Suspect]
     Active Substance: PREDNISONE
     Indication: Diffuse large B-cell lymphoma
     Dosage: (R-CHOP) CHOP
     Route: 065
     Dates: start: 20210901, end: 20220101
  9. VINCRISTINE SULFATE [Suspect]
     Active Substance: VINCRISTINE SULFATE
     Indication: Diffuse large B-cell lymphoma
     Dosage: (R-CHOP) CHOP
     Route: 065
     Dates: start: 20210901, end: 20220101
  10. CYCLOPHOSPHAMIDE [Suspect]
     Active Substance: CYCLOPHOSPHAMIDE
     Indication: Diffuse large B-cell lymphoma
     Dosage: (R-CHOP) CHOP
     Route: 065
     Dates: start: 20210901, end: 20220101
  11. POLATUZUMAB VEDOTIN [Suspect]
     Active Substance: POLATUZUMAB VEDOTIN
     Indication: Diffuse large B-cell lymphoma
     Dosage: (POLA-BR)
     Route: 065
     Dates: start: 20220501, end: 20220531
  12. RITUXIMAB [Suspect]
     Active Substance: RITUXIMAB
     Indication: Diffuse large B-cell lymphoma
     Dosage: (R-CHOP)
     Route: 065
     Dates: start: 20210901, end: 20220101
  13. RITUXIMAB [Suspect]
     Active Substance: RITUXIMAB
     Dosage: (R-GEMOX)
     Route: 065
     Dates: start: 20220201, end: 20220301
  14. RITUXIMAB [Suspect]
     Active Substance: RITUXIMAB
     Dosage: (POLA-BR)
     Route: 065
     Dates: start: 20220501, end: 20220531
  15. RITUXIMAB [Suspect]
     Active Substance: RITUXIMAB
     Dosage: (TRUXIMA, CYTARABIN, MITOXANTRONE)
     Route: 065
     Dates: start: 20220601, end: 20220630
  16. RITUXIMAB [Suspect]
     Active Substance: RITUXIMAB
     Dosage: (RITUXIMAB, LENALIDOMIDE, DEXAMETHASONE)
     Route: 065
     Dates: start: 20220701, end: 20220710
  17. MITOXANTRONE [Suspect]
     Active Substance: MITOXANTRONE HYDROCHLORIDE
     Indication: Diffuse large B-cell lymphoma
     Dosage: (RITUXIMAB, CYTARABIN, MITOXANTRONE)
     Route: 065
     Dates: start: 20220601, end: 20220630
  18. CYTARABINE [Suspect]
     Active Substance: CYTARABINE
     Indication: Diffuse large B-cell lymphoma
     Dosage: RITUXIMAB, CYTARABIN, MITOXANTRONE)
     Route: 065
     Dates: start: 20220601, end: 20220630
  19. TAFASITAMAB-CXIX [Suspect]
     Active Substance: TAFASITAMAB-CXIX
     Indication: Diffuse large B-cell lymphoma
     Dosage: (TAFASITAMAB, LENALIDOMIDE)
     Route: 065
     Dates: start: 20220830, end: 20220930

REACTIONS (2)
  - Malignant neoplasm progression [Not Recovered/Not Resolved]
  - Off label use [Unknown]
